FAERS Safety Report 25276698 (Version 2)
Quarter: 2025Q2

REPORT INFORMATION
  Report Type: Spontaneous
  Country: JP (occurrence: JP)
  Receive Date: 20250507
  Receipt Date: 20250527
  Transmission Date: 20250716
  Serious: No
  Sender: GILEAD
  Company Number: JP-GILEAD-2025-0712536

PATIENT
  Age: 68 Year
  Sex: Female

DRUGS (1)
  1. TRODELVY [Suspect]
     Active Substance: SACITUZUMAB GOVITECAN-HZIY
     Indication: Triple negative breast cancer
     Route: 065
     Dates: start: 20250415, end: 20250421

REACTIONS (2)
  - White blood cell count decreased [Recovered/Resolved]
  - Infection [Recovered/Resolved]

NARRATIVE: CASE EVENT DATE: 20250428
